FAERS Safety Report 5534642-7 (Version None)
Quarter: 2007Q4

REPORT INFORMATION
  Report Type: 
  Country: None (occurrence: None)
  Receive Date: 20071205
  Receipt Date: 20071126
  Transmission Date: 20080405
  Serious: Yes (Hospitalization)
  Sender: FDA-Public Use
  Company Number: PHHO2007DE19548

PATIENT
  Age: 25 Year
  Sex: Male

DRUGS (13)
  1. NEORAL [Suspect]
     Indication: RENAL TRANSPLANT
     Dosage: 80 MG / DAY
     Route: 048
     Dates: start: 20031216
  2. NEORAL [Suspect]
     Dosage: 160 MG / DAY
     Route: 048
     Dates: start: 20041109
  3. MYCOPHENOLATE MOFETIL [Suspect]
     Indication: RENAL TRANSPLANT
     Dosage: 1000 MG / DAY
     Route: 048
     Dates: start: 20041109
  4. MYCOPHENOLATE MOFETIL [Suspect]
     Dosage: 1000 MG, BID
     Route: 048
     Dates: start: 20041110
  5. PREDNISOLONE [Suspect]
     Indication: RENAL TRANSPLANT
     Dosage: 5 MG / DAY
     Route: 042
     Dates: start: 20040202
  6. PREDNISOLONE [Suspect]
     Dosage: 100 MG
     Route: 042
     Dates: start: 20041109
  7. AMPHOTERICIN B [Concomitant]
  8. CEFUROXIME [Concomitant]
  9. DILTIAZEM [Concomitant]
  10. FUROSEMIDE [Concomitant]
  11. METOPROLOL [Concomitant]
  12. URAPIDIL [Concomitant]
  13. RAMIPRIL [Concomitant]

REACTIONS (6)
  - URETERAL STENT INSERTION [None]
  - URETERAL STENT REMOVAL [None]
  - URETERIC DILATATION [None]
  - URETERIC OBSTRUCTION [None]
  - URETERIC STENOSIS [None]
  - URINARY TRACT INFECTION [None]
